FAERS Safety Report 9546450 (Version 1)
Quarter: 2013Q3

REPORT INFORMATION
  Report Type: Spontaneous
  Country: GB (occurrence: GB)
  Receive Date: 20130923
  Receipt Date: 20130923
  Transmission Date: 20140515
  Serious: Yes (Other)
  Sender: FDA-Public Use
  Company Number: GB-WATSON-2013-16601

PATIENT
  Sex: Male

DRUGS (1)
  1. NICOTINE (UNKNOWN) [Suspect]
     Indication: PRODUCT USED FOR UNKNOWN INDICATION
     Dosage: 1 MG, UNK
     Route: 048

REACTIONS (4)
  - Depression [Unknown]
  - Nausea [Unknown]
  - Insomnia [Unknown]
  - Treatment noncompliance [Unknown]
